FAERS Safety Report 8826823 (Version 1)
Quarter: 2012Q4

REPORT INFORMATION
  Report Type: 
  Country: US (occurrence: US)
  Receive Date: 20121005
  Receipt Date: 20121005
  Transmission Date: 20130627
  Serious: Yes (Other)
  Sender: FDA-Public Use
  Company Number: US-PFIZER INC-2012244729

PATIENT
  Age: 62 Year
  Sex: Female

DRUGS (2)
  1. PREMARIN [Suspect]
     Indication: MENOPAUSAL SYMPTOMS
     Dosage: 1.25 mg, UNK
     Route: 048
     Dates: start: 1995
  2. PREMARIN [Suspect]
     Dosage: 0.625 mg, 1x/day
     Route: 048
     Dates: start: 2006

REACTIONS (12)
  - Mycobacterium avium complex infection [Unknown]
  - Gastrointestinal obstruction [Not Recovered/Not Resolved]
  - Gastrointestinal disorder [Not Recovered/Not Resolved]
  - Condition aggravated [Not Recovered/Not Resolved]
  - Immune system disorder [Unknown]
  - Diarrhoea [Not Recovered/Not Resolved]
  - Rash [Unknown]
  - Fatigue [Unknown]
  - Dry skin [Unknown]
  - Malaise [Unknown]
  - Constipation [Unknown]
  - Alopecia [Unknown]
